FAERS Safety Report 9018192 (Version 1)
Quarter: 2013Q1

REPORT INFORMATION
  Report Type: Spontaneous
  Country: US (occurrence: None)
  Receive Date: 20130111
  Receipt Date: 20130111
  Transmission Date: 20140127
  Serious: Yes (Other)
  Sender: FDA-Public Use
  Company Number: None

PATIENT
  Age: 68 Year
  Sex: Female
  Weight: 68.04 kg

DRUGS (1)
  1. METHYLPREDNISOLONE [Suspect]
     Indication: UPPER RESPIRATORY TRACT INFECTION
     Dosage: 21 TABS FOR 6 DAYS 4X TO 1X DAILY PO
     Route: 048
     Dates: start: 20121228, end: 20121231

REACTIONS (10)
  - Nausea [None]
  - Hyperhidrosis [None]
  - Dyspepsia [None]
  - Dyspepsia [None]
  - Unevaluable event [None]
  - Abdominal pain upper [None]
  - Chest pain [None]
  - Back pain [None]
  - Pain [None]
  - Discomfort [None]
